FAERS Safety Report 19053312 (Version 1)
Quarter: 2021Q1

REPORT INFORMATION
  Report Type: Other
  Country: CN (occurrence: CN)
  Receive Date: 20210324
  Receipt Date: 20210324
  Transmission Date: 20210420
  Serious: Yes (Hospitalization, Other)
  Sender: FDA-Public Use
  Company Number: CN-GE HEALTHCARE LIFE SCIENCES-2021CSU001466

PATIENT

DRUGS (2)
  1. OMNISCAN [Suspect]
     Active Substance: GADODIAMIDE
     Indication: ARRHYTHMIA
  2. OMNISCAN [Suspect]
     Active Substance: GADODIAMIDE
     Indication: MAGNETIC RESONANCE IMAGING
     Dosage: 5 ML, SINGLE
     Route: 042
     Dates: start: 20210302, end: 20210302

REACTIONS (4)
  - Laryngeal oedema [Recovering/Resolving]
  - Nausea [Recovering/Resolving]
  - Flushing [Recovering/Resolving]
  - Laryngospasm [Recovering/Resolving]

NARRATIVE: CASE EVENT DATE: 20210302
